FAERS Safety Report 22262620 (Version 2)
Quarter: 2023Q2

REPORT INFORMATION
  Report Type: Report from Study
  Country: IN (occurrence: IN)
  Receive Date: 20230428
  Receipt Date: 20230501
  Transmission Date: 20230722
  Serious: No
  Sender: FDA-Public Use
  Company Number: IN-002147023-NVSC2021IN154805

PATIENT
  Age: 50 Year
  Sex: Male
  Weight: 57 kg

DRUGS (9)
  1. OFATUMUMAB [Suspect]
     Active Substance: OFATUMUMAB
     Indication: Multiple sclerosis relapse
     Dosage: 20 MG, Q4W
     Route: 058
     Dates: start: 20191230
  2. PLACEBO [Suspect]
     Active Substance: UNSPECIFIED INGREDIENT
     Indication: Multiple sclerosis relapse
     Dosage: 1 DOSAGE FORM, QW
     Route: 058
     Dates: start: 20200106
  3. BACLOFEN [Concomitant]
     Active Substance: BACLOFEN
     Indication: Myelopathy
     Dosage: UNK
     Route: 065
     Dates: start: 20200929
  4. BACLOFEN [Concomitant]
     Active Substance: BACLOFEN
     Dosage: UNK
     Route: 065
     Dates: start: 20210130
  5. PREGABALIN [Concomitant]
     Active Substance: PREGABALIN
     Indication: Myelopathy
     Dosage: UNK
     Route: 065
     Dates: start: 20200929
  6. AUGMENTIN [Concomitant]
     Active Substance: AMOXICILLIN\CLAVULANATE POTASSIUM
     Indication: Skin lesion
     Dosage: 625 MG TDS FPR 7 DAY
     Route: 065
     Dates: start: 20230326
  7. AUGMENTIN [Concomitant]
     Active Substance: AMOXICILLIN\CLAVULANATE POTASSIUM
     Indication: Furuncle
  8. FUCIDIN [Concomitant]
     Active Substance: FUSIDATE SODIUM
     Indication: Skin lesion
     Dosage: BD FOR 7 DAYS
     Route: 065
     Dates: start: 20230326
  9. FUCIDIN [Concomitant]
     Active Substance: FUSIDATE SODIUM
     Indication: Furuncle

REACTIONS (1)
  - No adverse event [Unknown]
